FAERS Safety Report 9148756 (Version 1)
Quarter: 2013Q1

REPORT INFORMATION
  Report Type: Spontaneous
  Country: US (occurrence: US)
  Receive Date: 20130308
  Receipt Date: 20130308
  Transmission Date: 20140127
  Serious: Yes (Other)
  Sender: FDA-Public Use
  Company Number: US-TEVA-390217USA

PATIENT
  Sex: Female

DRUGS (1)
  1. COPAXONE [Suspect]
     Route: 058
     Dates: start: 20070802

REACTIONS (5)
  - Multiple sclerosis relapse [Recovering/Resolving]
  - Ear infection [Unknown]
  - Gait disturbance [Recovering/Resolving]
  - Dysphemia [Recovering/Resolving]
  - Speech disorder [Recovering/Resolving]
